APPROVED DRUG PRODUCT: INDAPAMIDE
Active Ingredient: INDAPAMIDE
Strength: 1.25MG
Dosage Form/Route: TABLET;ORAL
Application: A074299 | Product #002 | TE Code: AB
Applicant: ANI PHARMACEUTICALS INC
Approved: Apr 29, 1996 | RLD: No | RS: No | Type: RX